FAERS Safety Report 9072909 (Version 1)
Quarter: 2013Q1

REPORT INFORMATION
  Report Type: Report from Study
  Country: US (occurrence: US)
  Receive Date: 20130129
  Receipt Date: 20130129
  Transmission Date: 20140127
  Serious: No
  Sender: FDA-Public Use
  Company Number: US-ABBOTT-12P-163-0938341-00

PATIENT
  Sex: Female
  Weight: 73.55 kg

DRUGS (7)
  1. HUMIRA 40 MG/0.8 ML PEN [Suspect]
     Indication: RHEUMATOID ARTHRITIS
     Route: 058
     Dates: end: 20120413
  2. ACCUPRIL [Concomitant]
     Indication: HYPERTENSION
  3. AMILORIDE/HCTZ [Concomitant]
     Indication: HYPERTENSION
  4. GLUCOTROL [Concomitant]
     Indication: DIABETES MELLITUS
  5. JANUMET [Concomitant]
     Indication: PRODUCT USED FOR UNKNOWN INDICATION
  6. CLONAZEPAM [Concomitant]
     Indication: FIBROMYALGIA
  7. ZANTAC [Concomitant]
     Indication: PRODUCT USED FOR UNKNOWN INDICATION

REACTIONS (3)
  - Furuncle [Recovered/Resolved]
  - Furuncle [Unknown]
  - Furuncle [Unknown]
